FAERS Safety Report 22267407 (Version 1)
Quarter: 2023Q2

REPORT INFORMATION
  Report Type: Spontaneous
  Country: US (occurrence: US)
  Receive Date: 20230428
  Receipt Date: 20230428
  Transmission Date: 20230721
  Serious: Yes (Other)
  Sender: FDA-Public Use
  Company Number: US-Teikoku Pharma USA-TPU2023-00253

PATIENT
  Sex: Female
  Weight: 82.628 kg

DRUGS (1)
  1. LIDOCAINE PATCH [Suspect]
     Active Substance: LIDOCAINE
     Indication: Pain
     Dosage: TO HER NECK AND BACK
     Route: 061

REACTIONS (8)
  - Dyskinesia [Unknown]
  - Fall [Unknown]
  - Tooth fracture [Unknown]
  - Wheelchair user [Unknown]
  - Weight increased [Unknown]
  - Cerebrovascular accident [Unknown]
  - Product dose omission issue [Not Recovered/Not Resolved]
  - Inability to afford medication [Not Recovered/Not Resolved]

NARRATIVE: CASE EVENT DATE: 20230101
